FAERS Safety Report 12912731 (Version 1)
Quarter: 2016Q4

REPORT INFORMATION
  Report Type: Spontaneous
  Country: US (occurrence: US)
  Receive Date: 20161104
  Receipt Date: 20161104
  Transmission Date: 20170207
  Serious: No
  Sender: FDA-Public Use
  Company Number: US-BEH-2016074821

PATIENT
  Age: 9 Year
  Sex: Male
  Weight: 24.5 kg

DRUGS (2)
  1. IDELVION [Suspect]
     Active Substance: COAGULATION FACTOR IX RECOMBINANT HUMAN
     Indication: FACTOR IX DEFICIENCY
     Dosage: 1795 IU, QW
     Route: 065
     Dates: start: 20161005
  2. IDELVION [Suspect]
     Active Substance: COAGULATION FACTOR IX RECOMBINANT HUMAN
     Dosage: UNK
     Route: 065

REACTIONS (1)
  - Paraesthesia [Recovered/Resolved]

NARRATIVE: CASE EVENT DATE: 20161014
